FAERS Safety Report 25304919 (Version 3)
Quarter: 2025Q3

REPORT INFORMATION
  Report Type: Spontaneous
  Country: US (occurrence: US)
  Receive Date: 20250513
  Receipt Date: 20250818
  Transmission Date: 20251021
  Serious: No
  Sender: PFIZER
  Company Number: US-PFIZER INC-202400206302

PATIENT
  Age: 70 Year
  Sex: Female

DRUGS (1)
  1. TUKYSA [Suspect]
     Active Substance: TUCATINIB
     Indication: HER2 negative breast cancer
     Dosage: 150MG TWO TABLETS TWICE A DAY
     Route: 048
     Dates: start: 202407

REACTIONS (3)
  - Bone disorder [Unknown]
  - Hypertension [Unknown]
  - Off label use [Unknown]

NARRATIVE: CASE EVENT DATE: 20240701
